FAERS Safety Report 6483049-7 (Version None)
Quarter: 2009Q4

REPORT INFORMATION
  Report Type: 
  Country: None (occurrence: None)
  Receive Date: 20091209
  Receipt Date: 20091125
  Transmission Date: 20100525
  Serious: Yes (Hospitalization)
  Sender: FDA-Public Use
  Company Number: JP-ROCHE-670829

PATIENT
  Sex: Female
  Weight: 40 kg

DRUGS (8)
  1. PEG-INTERFERON ALFA 2A (RO 25-8310) [Suspect]
     Indication: HEPATITIS C
     Route: 058
     Dates: start: 20091007
  2. RIBAVIRIN [Suspect]
     Indication: HEPATITIS C
     Route: 048
     Dates: start: 20091007, end: 20091028
  3. RIBAVIRIN [Suspect]
     Route: 048
     Dates: start: 20091029
  4. PRAVASTATIN SODIUM [Concomitant]
     Dosage: DRUG NAME: MAIBASTAN.
     Route: 048
     Dates: start: 20090401, end: 20091111
  5. PRAVASTATIN SODIUM [Concomitant]
     Route: 048
     Dates: start: 20091112
  6. BIOFERMIN [Concomitant]
     Dosage: NITE: TAKEN AS NEEDED.
     Route: 048
     Dates: start: 20050101
  7. LAC-B [Concomitant]
     Dosage: NOTE: TAKEN AS NEEDED.
     Route: 065
     Dates: start: 20091013
  8. MUCOSTA [Concomitant]
     Dosage: NOTE: TAKEN AS NEEDED.
     Route: 048
     Dates: start: 20091029

REACTIONS (5)
  - COLONIC POLYP [None]
  - HAEMOGLOBIN DECREASED [None]
  - MALAISE [None]
  - PYREXIA [None]
  - RASH [None]
